FAERS Safety Report 9264217 (Version 2)
Quarter: 2013Q3

REPORT INFORMATION
  Report Type: Spontaneous
  Country: JP (occurrence: JP)
  Receive Date: 20130430
  Receipt Date: 20130729
  Transmission Date: 20140515
  Serious: Yes (Other)
  Sender: FDA-Public Use
  Company Number: JP-B.I. PHARMACEUTICALS,INC./RIDGEFIELD-2013-BI-11090NB

PATIENT
  Age: 74 Year
  Sex: Male

DRUGS (6)
  1. PRAZAXA [Suspect]
     Indication: ATRIAL FIBRILLATION
     Dosage: 220 MG
     Route: 048
     Dates: start: 20130129, end: 20130408
  2. DIGOXIN [Concomitant]
     Route: 065
  3. FLUITRAN [Concomitant]
     Route: 065
  4. PERDIPINE [Concomitant]
     Route: 065
  5. CONIEL [Concomitant]
     Route: 065
  6. FAMOTIDINE D [Concomitant]
     Route: 065

REACTIONS (2)
  - Myalgia [Not Recovered/Not Resolved]
  - Arthralgia [Not Recovered/Not Resolved]
